FAERS Safety Report 4648292-8 (Version None)
Quarter: 2005Q2

REPORT INFORMATION
  Report Type: 
  Country: None (occurrence: None)
  Receive Date: 20050331
  Receipt Date: 20041227
  Transmission Date: 20051028
  Serious: No
  Sender: FDA-Public Use
  Company Number: 04P-163-0284706-00

PATIENT
  Age: 69 Year
  Sex: Female
  Weight: 58.0604 kg

DRUGS (9)
  1. HUMIRA [Suspect]
     Indication: RHEUMATOID ARTHRITIS
     Dosage: 40 MG, 1 IN 2 WK, SUBCUTANEOUS
     Route: 058
     Dates: start: 20040801
  2. HYDROXYCHLOROQUINE PHOSPHATE [Concomitant]
  3. FUROSEMIDE [Concomitant]
  4. METOPROLOL [Concomitant]
  5. DIGOXIN [Concomitant]
  6. GLIPIZIDE [Concomitant]
  7. VERAPAMIL [Concomitant]
  8. CALCIUM CARBONATE [Concomitant]
  9. ASPIRIN [Concomitant]

REACTIONS (1)
  - INJECTION SITE IRRITATION [None]
